FAERS Safety Report 4604039-2 (Version None)
Quarter: 2005Q1

REPORT INFORMATION
  Report Type: 
  Country: None (occurrence: None)
  Receive Date: 20050308
  Receipt Date: 20050308
  Transmission Date: 20050727
  Serious: Yes (Other)
  Sender: FDA-Public Use
  Company Number: None

PATIENT
  Sex: Male
  Weight: 11.3399 kg

DRUGS (2)
  1. ORAPRED [Suspect]
     Indication: ASTHMA
     Dosage: 4 ML  DAILY X 5 DAYS ORAL
     Route: 048
     Dates: start: 20050304, end: 20050305
  2. ORAPRED [Suspect]
     Indication: BRONCHIECTASIS
     Dosage: 4 ML  DAILY X 5 DAYS ORAL
     Route: 048
     Dates: start: 20050304, end: 20050305

REACTIONS (5)
  - ABNORMAL BEHAVIOUR [None]
  - AFFECT LABILITY [None]
  - CRYING [None]
  - SCREAMING [None]
  - SLEEP DISORDER [None]
